FAERS Safety Report 13465917 (Version 5)
Quarter: 2018Q1

REPORT INFORMATION
  Report Type: Report from Study
  Country: FR (occurrence: FR)
  Receive Date: 20170421
  Receipt Date: 20180126
  Transmission Date: 20180508
  Serious: Yes (Hospitalization, Other)
  Sender: FDA-Public Use
  Company Number: FR-VIFOR (INTERNATIONAL) INC.-VIT-2017-03967

PATIENT
  Age: 65 Year
  Sex: Male
  Weight: 125 kg

DRUGS (11)
  1. ARANESP [Concomitant]
     Active Substance: DARBEPOETIN ALFA
     Indication: CHRONIC KIDNEY DISEASE
     Dates: start: 20170306
  2. TARDYFERON [Concomitant]
     Active Substance: FERROUS SULFATE
     Dates: start: 20170613
  3. VENOFER [Concomitant]
     Active Substance: IRON SUCROSE
     Indication: CHRONIC KIDNEY DISEASE
     Dates: start: 20170203, end: 20170303
  4. DUOPLAVIN [Concomitant]
     Active Substance: ASPIRIN\CLOPIDOGREL
     Indication: MYOCARDIAL ISCHAEMIA
     Dates: start: 20151013
  5. KARDEGIC [Concomitant]
     Active Substance: ASPIRIN DL-LYSINE
     Indication: MYOCARDIAL ISCHAEMIA
     Dates: start: 20170121
  6. VELPHORO [Suspect]
     Active Substance: FERRIC OXYHYDROXIDE
     Indication: HYPERPHOSPHATAEMIA
     Route: 048
     Dates: start: 20161004
  7. DUPHALAC [Concomitant]
     Active Substance: LACTULOSE
     Indication: CONSTIPATION
     Dates: start: 20160614
  8. TARDYFERON [Concomitant]
     Active Substance: FERROUS SULFATE
     Indication: CHRONIC KIDNEY DISEASE
     Dates: start: 20170424, end: 20170613
  9. OMEPRAZOLE. [Concomitant]
     Active Substance: OMEPRAZOLE
     Indication: GASTRITIS
     Dates: start: 20130711
  10. UVEDOSE [Concomitant]
     Active Substance: CHOLECALCIFEROL
     Dates: start: 20121008
  11. OMEPRAZOLE. [Concomitant]
     Active Substance: OMEPRAZOLE
     Indication: GASTRITIS
     Dates: start: 20130711

REACTIONS (1)
  - Sepsis [Recovering/Resolving]

NARRATIVE: CASE EVENT DATE: 20161027
